FAERS Safety Report 13489964 (Version 2)
Quarter: 2017Q2

REPORT INFORMATION
  Report Type: Report from Study
  Country: None (occurrence: GR)
  Receive Date: 20170427
  Receipt Date: 20170504
  Transmission Date: 20170830
  Serious: Yes (Hospitalization, Other)
  Sender: FDA-Public Use
  Company Number: GR-ABBVIE-17P-066-1955096-00

PATIENT
  Age: 79 Year
  Sex: Male
  Weight: 66 kg

DRUGS (7)
  1. MADOPAR [Concomitant]
     Active Substance: BENSERAZIDE HYDROCHLORIDE\LEVODOPA
     Indication: PARKINSON^S DISEASE
     Dosage: (200+50) MG
     Route: 048
     Dates: start: 20170411
  2. DUODOPA [Suspect]
     Active Substance: CARBIDOPA\LEVODOPA
     Indication: PARKINSON^S DISEASE
     Dosage: MORNING DOSE: 9.5ML; CONTINUOUS RATE: 5.1ML/H; EXTRA DOSE: 0.4ML
     Route: 050
     Dates: start: 20170117, end: 20170411
  3. AZAPIN [Concomitant]
     Indication: DEPRESSION
     Route: 048
  4. QUETIAPINE. [Concomitant]
     Active Substance: QUETIAPINE
     Indication: DEPRESSION
     Route: 048
     Dates: start: 20170320
  5. ZOMARIST [Concomitant]
     Active Substance: VILDAGLIPTIN
     Indication: DIABETES MELLITUS
     Dosage: (50+850) MG
     Route: 048
  6. FLUOXETINE HYDROCHLORIDE. [Concomitant]
     Active Substance: FLUOXETINE HYDROCHLORIDE
     Indication: DEPRESSION
     Route: 048
     Dates: start: 20170313
  7. CILROTON [Concomitant]
     Indication: GASTRIC HYPOMOTILITY
     Route: 048

REACTIONS (5)
  - Blood albumin decreased [Recovering/Resolving]
  - Colitis ulcerative [Recovering/Resolving]
  - C-reactive protein increased [Recovering/Resolving]
  - Flatulence [Recovered/Resolved]
  - Haematocrit decreased [Not Recovered/Not Resolved]

NARRATIVE: CASE EVENT DATE: 201702
